FAERS Safety Report 14253501 (Version 8)
Quarter: 2018Q4

REPORT INFORMATION
  Report Type: Spontaneous
  Country: NO (occurrence: NO)
  Receive Date: 20171206
  Receipt Date: 20180912
  Transmission Date: 20190204
  Serious: Yes (Other)
  Sender: FDA-Public Use
  Company Number: NO-ACCORD-061592

PATIENT
  Sex: Female

DRUGS (34)
  1. ZOPICLONE [Suspect]
     Active Substance: ZOPICLONE
     Route: 065
  2. KETORAX [Suspect]
     Active Substance: KETOBEMIDONE HYDROCHLORIDE
  3. DULCOLAX NOS [Suspect]
     Active Substance: BISACODYL OR DOCUSATE SODIUM
     Route: 048
  4. QUETIAPINE/QUETIAPINE FUMARATE [Concomitant]
  5. NALOXONE [Suspect]
     Active Substance: NALOXONE
  6. PINEX FORTE [Suspect]
     Active Substance: ACETAMINOPHEN\CODEINE PHOSPHATE
  7. BACLOFEN. [Suspect]
     Active Substance: BACLOFEN
     Route: 065
  8. ONDANSETRON [Suspect]
     Active Substance: ONDANSETRON
  9. METOCLOPRAMIDE. [Suspect]
     Active Substance: METOCLOPRAMIDE
     Route: 065
  10. TRAMADOL. [Suspect]
     Active Substance: TRAMADOL
  11. SOBRIL [Suspect]
     Active Substance: OXAZEPAM
     Route: 065
  12. BUSCOPAN [Suspect]
     Active Substance: BUTYLSCOPOLAMINE BROMIDE
  13. ORAMORPH [Suspect]
     Active Substance: MORPHINE SULFATE
  14. SETOFILM [Suspect]
     Active Substance: ONDANSETRON
     Dosage: FORMULATION: ORODISPERSIBLE FILM
     Route: 065
  15. OXYNORM [Suspect]
     Active Substance: OXYCODONE HYDROCHLORIDE
  16. VALIUM [Suspect]
     Active Substance: DIAZEPAM
     Route: 065
  17. DIAZEPAM. [Suspect]
     Active Substance: DIAZEPAM
  18. PREDNISOLONE. [Suspect]
     Active Substance: PREDNISOLONE
  19. MORPHINE [Suspect]
     Active Substance: MORPHINE
     Route: 065
  20. FURIX [Suspect]
     Active Substance: FUROSEMIDE
  21. STESOLID [Suspect]
     Active Substance: DIAZEPAM
  22. FLUCONAZOL [Suspect]
     Active Substance: FLUCONAZOLE
     Route: 065
  23. PANTOPRAZOLE [Suspect]
     Active Substance: PANTOPRAZOLE
  24. GABAPENTIN. [Suspect]
     Active Substance: GABAPENTIN
  25. NEURONTIN [Suspect]
     Active Substance: GABAPENTIN
     Route: 065
  26. ZOFRAN [Suspect]
     Active Substance: ONDANSETRON HYDROCHLORIDE
     Route: 065
  27. SOMAC [Suspect]
     Active Substance: PANTOPRAZOLE SODIUM
  28. AFIPRAM [Suspect]
     Active Substance: METOCLOPRAMIDE HYDROCHLORIDE
  29. OXYCODONE [Suspect]
     Active Substance: OXYCODONE
  30. MIDAZOLAM [Suspect]
     Active Substance: MIDAZOLAM HYDROCHLORIDE
     Route: 065
  31. TARGINIQ ER [Suspect]
     Active Substance: NALOXONE HYDROCHLORIDE\OXYCODONE HYDROCHLORIDE
  32. ZOLPIDEM [Suspect]
     Active Substance: ZOLPIDEM\ZOLPIDEM TARTRATE
     Route: 048
  33. NOZINAN [Suspect]
     Active Substance: LEVOMEPROMAZINE
  34. OXYCODONE/NALOXONE [Concomitant]

REACTIONS (3)
  - Drug dependence [Unknown]
  - Drug abuse [Unknown]
  - Drug diversion [Unknown]
